FAERS Safety Report 8315504-9 (Version None)
Quarter: 2012Q2

REPORT INFORMATION
  Report Type: 
  Country: None (occurrence: None)
  Receive Date: 20120426
  Receipt Date: 20090126
  Transmission Date: 20120825
  Serious: Yes (Other)
  Sender: FDA-Public Use
  Company Number: US-TEVA-US025358

PATIENT
  Sex: Female
  Weight: 104 kg

DRUGS (10)
  1. FENTANYL CITRATE [Suspect]
     Indication: CANCER PAIN
     Dosage: 800 UG THREE TIMES DAILY AS NEEDED
     Route: 002
     Dates: start: 20010101
  2. WELLBUTRIN [Concomitant]
     Indication: SMOKING CESSATION THERAPY
     Route: 065
     Dates: start: 19980101
  3. MS CONTIN [Concomitant]
     Indication: CANCER PAIN
     Route: 065
     Dates: start: 20020101
  4. REGLAN [Concomitant]
     Indication: DYSPEPSIA
     Route: 065
     Dates: start: 20000101
  5. LEVEMIR [Concomitant]
     Indication: BLOOD GLUCOSE INCREASED
     Route: 065
     Dates: start: 20090122
  6. HYDROXYZINE [Concomitant]
     Indication: RASH
     Route: 065
     Dates: start: 20060101
  7. METFORMIN HCL [Concomitant]
     Indication: BLOOD GLUCOSE INCREASED
     Route: 065
     Dates: start: 20070101
  8. PROMETHAZINE [Concomitant]
     Indication: NAUSEA
     Route: 065
     Dates: start: 20000101
  9. RANITIDINE [Concomitant]
     Indication: GASTROOESOPHAGEAL REFLUX DISEASE
     Route: 065
     Dates: start: 20000101
  10. DILAUDID [Concomitant]
     Indication: CANCER PAIN
     Route: 065
     Dates: start: 20020101

REACTIONS (1)
  - BLOOD GLUCOSE INCREASED [None]
